FAERS Safety Report 4421168-7 (Version None)
Quarter: 2004Q3

REPORT INFORMATION
  Report Type: 
  Country: None (occurrence: None)
  Receive Date: 20040804
  Receipt Date: 20040720
  Transmission Date: 20050211
  Serious: Yes (Hospitalization, Other)
  Sender: FDA-Public Use
  Company Number: ES-JNJFOC-20040705324

PATIENT
  Age: 48 Year
  Sex: Female

DRUGS (7)
  1. REMICADE [Suspect]
     Indication: PSORIATIC ARTHROPATHY
     Dosage: SEE IMAGE
     Route: 042
     Dates: start: 20040116
  2. REMICADE [Suspect]
     Indication: PSORIATIC ARTHROPATHY
     Dosage: SEE IMAGE
     Route: 042
     Dates: start: 20040130
  3. REMICADE [Suspect]
     Indication: PSORIATIC ARTHROPATHY
     Dosage: SEE IMAGE
     Route: 042
     Dates: start: 20040227
  4. REMICADE [Suspect]
     Indication: PSORIATIC ARTHROPATHY
     Dosage: SEE IMAGE
     Route: 042
     Dates: start: 20040428
  5. METHOTHREXATE (METHOTREXATE) [Concomitant]
  6. CEMIDON (SONIAZID) [Concomitant]
  7. NAPROXEN [Suspect]

REACTIONS (8)
  - BLINDNESS [None]
  - DEMYELINATION [None]
  - HYPOAESTHESIA [None]
  - NEUROPATHY [None]
  - OPTIC NEUROPATHY [None]
  - TRIGEMINAL NERVE DISORDER [None]
  - VISION BLURRED [None]
  - VISUAL ACUITY REDUCED [None]
